FAERS Safety Report 23686387 (Version 1)
Quarter: 2024Q1

REPORT INFORMATION
  Report Type: Other
  Country: DK (occurrence: None)
  Receive Date: 20240329
  Receipt Date: 20240329
  Transmission Date: 20240409
  Serious: Yes (Other)
  Sender: FDA-Public Use
  Company Number: DK-ROCHE-3530415

PATIENT

DRUGS (2)
  1. BEVACIZUMAB [Suspect]
     Active Substance: BEVACIZUMAB
     Indication: Gastrooesophageal cancer
     Dosage: ON DAYS 1 AND 15 EVERY 28 DAYS.
     Route: 042
  2. TIPIRACIL HYDROCHLORIDE\TRIFLURIDINE [Suspect]
     Active Substance: TIPIRACIL HYDROCHLORIDE\TRIFLURIDINE
     Indication: Gastrooesophageal cancer
     Dosage: ON DAYS 1-5 AND 8-12 EVERY 28 DAYS
     Route: 048

REACTIONS (11)
  - Neutropenia [Unknown]
  - Anaemia [Unknown]
  - Platelet count decreased [Unknown]
  - Nausea [Unknown]
  - Diarrhoea [Unknown]
  - Vomiting [Unknown]
  - Fatigue [Unknown]
  - Febrile neutropenia [Unknown]
  - Embolism venous [Unknown]
  - Pulmonary embolism [Unknown]
  - Renal vein thrombosis [Unknown]
